FAERS Safety Report 25135005 (Version 1)
Quarter: 2025Q1

REPORT INFORMATION
  Report Type: Spontaneous
  Country: US (occurrence: US)
  Receive Date: 20250328
  Receipt Date: 20250328
  Transmission Date: 20250409
  Serious: No
  Sender: PFIZER
  Company Number: US-PFIZER INC-202500066000

PATIENT
  Age: 82 Year
  Sex: Male
  Weight: 68.04 kg

DRUGS (2)
  1. PROCARDIA XL [Suspect]
     Active Substance: NIFEDIPINE
     Indication: Hypertension
  2. PROCARDIA XL [Suspect]
     Active Substance: NIFEDIPINE
     Dates: start: 202412, end: 202501

REACTIONS (1)
  - Peripheral swelling [Not Recovered/Not Resolved]

NARRATIVE: CASE EVENT DATE: 20241201
